FAERS Safety Report 23080590 (Version 1)
Quarter: 2023Q4

REPORT INFORMATION
  Report Type: Spontaneous
  Country: US (occurrence: US)
  Receive Date: 20231018
  Receipt Date: 20231018
  Transmission Date: 20240109
  Serious: No
  Sender: FDA-Public Use
  Company Number: US-PFIZER INC-PV202300129786

PATIENT
  Age: 59 Year
  Sex: Female
  Weight: 70.748 kg

DRUGS (2)
  1. IBRANCE [Suspect]
     Active Substance: PALBOCICLIB
     Indication: Breast cancer
     Dosage: 125 MG, DAILY (TAKE 1 TABLET BY MOUTH DAILY DAYS 1-21 THEN 7 DAYS OFF)
     Route: 048
     Dates: start: 20230719, end: 202310
  2. FASLODEX [Concomitant]
     Active Substance: FULVESTRANT
     Dosage: EVERY 4 WEEKS
     Dates: start: 202307, end: 202310

REACTIONS (2)
  - Neoplasm progression [Unknown]
  - Off label use [Unknown]
